FAERS Safety Report 5931103-8 (Version None)
Quarter: 2008Q4

REPORT INFORMATION
  Report Type: 
  Country: None (occurrence: None)
  Receive Date: 20081022
  Receipt Date: 20081016
  Transmission Date: 20090506
  Serious: Yes (Other)
  Sender: FDA-Public Use
  Company Number: CHPA2008US17699

PATIENT
  Sex: Female

DRUGS (1)
  1. FERROUS SULFATE TAB [Suspect]
     Dosage: ORAL

REACTIONS (1)
  - CYSTITIS INTERSTITIAL [None]
